FAERS Safety Report 18666144 (Version 1)
Quarter: 2020Q4

REPORT INFORMATION
  Report Type: Spontaneous
  Country: DE (occurrence: DE)
  Receive Date: 20201226
  Receipt Date: 20201226
  Transmission Date: 20210114
  Serious: Yes (Hospitalization)
  Sender: FDA-Public Use
  Company Number: DE-TEVA-2020-DE-1861262

PATIENT
  Age: 85 Year
  Sex: Female

DRUGS (10)
  1. TILIDINE/NALOXONE [Concomitant]
     Active Substance: NALOXONE HYDROCHLORIDE\TILIDINE HYDROCHLORIDE
     Dosage: 1 DOSAGE FORMS DAILY; 4|50 MG, 0-0-0-1
  2. LEVOTHYROXINE-NATRIUM [Concomitant]
     Dosage: 112 MICROGRAM DAILY; 1-0-0-0
  3. METOPROLOL. [Concomitant]
     Active Substance: METOPROLOL
     Dosage: 47.5 MILLIGRAM DAILY; 1-0-1-0
  4. TORASEMID [Suspect]
     Active Substance: TORSEMIDE
     Dosage: 10 MG, 1-0-0.5-0
  5. APIXABAN [Suspect]
     Active Substance: APIXABAN
     Dosage: 10 MILLIGRAM DAILY; 1-0-1-0
  6. ATORVASTATIN [Concomitant]
     Active Substance: ATORVASTATIN
     Dosage: 40 MILLIGRAM DAILY; 0-0-1-0
  7. MOVICOL [Concomitant]
     Active Substance: POLYETHYLENE GLYCOL 3350\POTASSIUM CHLORIDE\SODIUM BICARBONATE\SODIUM CHLORIDE
     Dosage: 1 DOSAGE FORMS DAILY; 0-0-1-0
  8. XIPAMID [Suspect]
     Active Substance: XIPAMIDE
     Dosage: 10 MILLIGRAM DAILY;  0-1-0-0
  9. GLYCILAX FUR ERWACHSENE [Concomitant]
     Dosage: 2 DOSAGE FORMS DAILY; 0-0-2-0
     Route: 054
  10. DAPSON-FATOL [Suspect]
     Active Substance: DAPSONE
     Dosage: 50 MILLIGRAM DAILY; 0-0-1-0

REACTIONS (4)
  - Electrolyte imbalance [Unknown]
  - Haematochezia [Unknown]
  - Faecaloma [Unknown]
  - Diarrhoea [Unknown]
